FAERS Safety Report 25541273 (Version 3)
Quarter: 2025Q4

REPORT INFORMATION
  Report Type: Spontaneous
  Country: JP (occurrence: JP)
  Receive Date: 20250711
  Receipt Date: 20251006
  Transmission Date: 20260117
  Serious: Yes (Death, Hospitalization, Other)
  Sender: GLAXOSMITHKLINE
  Company Number: JP-GSKJP-JP2025084562AA

PATIENT
  Age: 75 Year
  Sex: Male

DRUGS (2)
  1. MOMELOTINIB [Suspect]
     Active Substance: MOMELOTINIB
     Indication: Myelofibrosis
     Dosage: 200 MG, 1D
  2. RUXOLITINIB [Concomitant]
     Active Substance: RUXOLITINIB
     Indication: Myelofibrosis
     Dosage: 10 MG, QD

REACTIONS (4)
  - Disease progression [Fatal]
  - Dysphagia [Fatal]
  - Pneumonia [Fatal]
  - Acute myeloid leukaemia [Unknown]

NARRATIVE: CASE EVENT DATE: 20240801
